FAERS Safety Report 26182710 (Version 1)
Quarter: 2025Q4

REPORT INFORMATION
  Report Type: Spontaneous
  Country: US (occurrence: US)
  Receive Date: 20251221
  Receipt Date: 20251221
  Transmission Date: 20260118
  Serious: Yes (Other)
  Sender: AMGEN
  Company Number: US-AMGEN-USASP2025247742

PATIENT
  Age: 35 Year
  Sex: Male

DRUGS (2)
  1. BEVACIZUMAB [Suspect]
     Active Substance: BEVACIZUMAB
     Indication: Lung adenocarcinoma stage II
     Dosage: UNK
     Route: 065
  2. BRIGATINIB [Concomitant]
     Active Substance: BRIGATINIB
     Dosage: 180 MILLIGRAM, QD
     Route: 065

REACTIONS (7)
  - Lung adenocarcinoma stage II [Unknown]
  - Fatigue [Unknown]
  - Rash [Unknown]
  - Oedema [Unknown]
  - Hypercholesterolaemia [Unknown]
  - Weight increased [Unknown]
  - Hypertriglyceridaemia [Unknown]
